FAERS Safety Report 8552429-8 (Version None)
Quarter: 2012Q3

REPORT INFORMATION
  Report Type: 
  Country: None (occurrence: None)
  Receive Date: 20120731
  Receipt Date: 20120726
  Transmission Date: 20120928
  Serious: Yes (Other)
  Sender: FDA-Public Use
  Company Number: US-SANOFI-AVENTIS-2012SA053563

PATIENT
  Sex: Female

DRUGS (4)
  1. LANTUS [Suspect]
     Route: 058
     Dates: end: 20120101
  2. SOLOSTAR [Suspect]
     Dates: start: 20120101
  3. HUMALOG [Suspect]
     Dosage: 30-35 UNITS ON A SLIDING SCALE.
     Route: 065
  4. LANTUS SOLOSTAR [Suspect]
     Dosage: 30-35 UNITS TWICE A DAY.
     Route: 058
     Dates: start: 20120101

REACTIONS (1)
  - BLINDNESS UNILATERAL [None]
